FAERS Safety Report 6713773-X (Version None)
Quarter: 2010Q2

REPORT INFORMATION
  Report Type: 
  Country: None (occurrence: None)
  Receive Date: 20100503
  Receipt Date: 20100419
  Transmission Date: 20101027
  Serious: Yes (Hospitalization)
  Sender: FDA-Public Use
  Company Number: TW-JNJFOC-20080205814

PATIENT
  Age: 72 Year
  Sex: Male

DRUGS (9)
  1. DECITABINE (DECITABINE) LYOPHILIZED POWDER [Suspect]
     Indication: ACUTE MYELOID LEUKAEMIA
     Dosage: 20 MG/M2, 1 IN 1 DAY, INTRAVENOUS ; 20 MG/M2, 1 IN 1 DAY, INTRAVENOUS
     Route: 042
     Dates: start: 20080130, end: 20080203
  2. DECITABINE (DECITABINE) LYOPHILIZED POWDER [Suspect]
     Indication: ACUTE MYELOID LEUKAEMIA
     Dosage: 20 MG/M2, 1 IN 1 DAY, INTRAVENOUS ; 20 MG/M2, 1 IN 1 DAY, INTRAVENOUS
     Route: 042
     Dates: start: 20071204, end: 20080419
  3. FELODIPINE (FELODIPINE) TABLET [Concomitant]
  4. METFORMIN (METFORMIN) TABLET [Concomitant]
  5. GLIPIZIDE [Concomitant]
  6. MAGNESIUM OXIDE (MAGNESIUM OXIDE) TABLET [Concomitant]
  7. SILYMARIN (SILYBUM MARIANUM) TABLET [Concomitant]
  8. SENNOSIDE A+B CALCIUM (SENNOSIDE A+B CALCIUM) TABLET [Concomitant]
  9. ULTRACET (ULTRACET) UNSPECIFIED) [Concomitant]

REACTIONS (14)
  - BACTERAEMIA [None]
  - DYSPNOEA EXERTIONAL [None]
  - ECTHYMA [None]
  - HAEMOPTYSIS [None]
  - HEPATITIS C [None]
  - HYPERBILIRUBINAEMIA [None]
  - HYPERGLYCAEMIA [None]
  - LUNG CONSOLIDATION [None]
  - PLEURAL EFFUSION [None]
  - PNEUMONIA [None]
  - PNEUMONITIS [None]
  - PSEUDOMONAS INFECTION [None]
  - PULMONARY HAEMORRHAGE [None]
  - PYREXIA [None]
